FAERS Safety Report 17284881 (Version 2)
Quarter: 2020Q3

REPORT INFORMATION
  Report Type: Spontaneous
  Country: US (occurrence: US)
  Receive Date: 20200117
  Receipt Date: 20200805
  Transmission Date: 20201102
  Serious: Yes (Hospitalization)
  Sender: FDA-Public Use
  Company Number: US-ACTELION-A-US2020-200567

PATIENT
  Age: 74 Year
  Sex: Male
  Weight: 113.38 kg

DRUGS (1)
  1. OPSUMIT [Suspect]
     Active Substance: MACITENTAN
     Indication: PULMONARY ARTERIAL HYPERTENSION
     Dosage: 10 MG, QD
     Route: 048

REACTIONS (2)
  - Hospitalisation [Not Recovered/Not Resolved]
  - Dyspnoea [Unknown]

NARRATIVE: CASE EVENT DATE: 20200107
